FAERS Safety Report 25787906 (Version 1)
Quarter: 2025Q3

REPORT INFORMATION
  Report Type: Spontaneous
  Country: US (occurrence: None)
  Receive Date: 20250910
  Receipt Date: 20250910
  Transmission Date: 20251020
  Serious: Yes (Hospitalization)
  Sender: FDA-CTU
  Company Number: None

PATIENT
  Age: 68 Year
  Sex: Female
  Weight: 68.85 kg

DRUGS (2)
  1. ZINC ACETATE [Suspect]
     Active Substance: ZINC ACETATE
     Indication: Wound treatment
     Dosage: FREQUENCY : DAILY;?
     Route: 003
     Dates: start: 20240715, end: 20250829
  2. PERIGUARD [Suspect]
     Active Substance: PETROLATUM
     Dosage: DAILY CUTANEOUS?
     Route: 003
     Dates: start: 20240805, end: 20250829

REACTIONS (2)
  - Pneumonia [None]
  - Sepsis [None]

NARRATIVE: CASE EVENT DATE: 20250909
